FAERS Safety Report 6144724-7 (Version None)
Quarter: 2009Q2

REPORT INFORMATION
  Report Type: 
  Country: None (occurrence: None)
  Receive Date: 20090406
  Receipt Date: 20090327
  Transmission Date: 20091009
  Serious: Yes (Other)
  Sender: FDA-Public Use
  Company Number: GB-ASTRAZENECA-2009GB00798

PATIENT
  Age: 572 Month
  Sex: Female

DRUGS (2)
  1. SEROQUEL XR [Suspect]
     Indication: SCHIZOPHRENIA
     Dosage: 800 MG
     Route: 048
     Dates: start: 20081218, end: 20090327
  2. MAGNESIUM SULFATE [Concomitant]
     Indication: MEDICAL DIET

REACTIONS (1)
  - THROMBOCYTOPENIA [None]
